FAERS Safety Report 15738936 (Version 3)
Quarter: 2019Q2

REPORT INFORMATION
  Report Type: Spontaneous
  Country: AT (occurrence: AT)
  Receive Date: 20181219
  Receipt Date: 20190411
  Transmission Date: 20190711
  Serious: Yes (Other)
  Sender: FDA-Public Use
  Company Number: AT-ALK-ABELLO A/S-2018AA003608

PATIENT

DRUGS (1)
  1. ACARIZAX 12 SQ-HDM [Suspect]
     Active Substance: DERMATOPHAGOIDES FARINAE\DERMATOPHAGOIDES PTERONYSSINUS
     Indication: PRODUCT USED FOR UNKNOWN INDICATION
     Dosage: 12 SQ-HDM
     Dates: start: 201701, end: 201810

REACTIONS (8)
  - Chest discomfort [Recovered/Resolved]
  - Cough [Recovered/Resolved]
  - Blood immunoglobulin E increased [Not Recovered/Not Resolved]
  - Rhinorrhoea [Not Recovered/Not Resolved]
  - Eye pruritus [Not Recovered/Not Resolved]
  - Respiratory tract congestion [Recovered/Resolved]
  - Oesophageal dilatation [Not Recovered/Not Resolved]
  - Eructation [Recovered/Resolved]

NARRATIVE: CASE EVENT DATE: 2018
